FAERS Safety Report 6968309-5 (Version None)
Quarter: 2010Q3

REPORT INFORMATION
  Report Type: 
  Country: None (occurrence: None)
  Receive Date: 20100907
  Receipt Date: 20100823
  Transmission Date: 20110219
  Serious: Yes (Death, Other)
  Sender: FDA-Public Use
  Company Number: TH-ROCHE-722871

PATIENT

DRUGS (3)
  1. MYCOPHENOLATE MOFETIL [Suspect]
     Route: 065
  2. CYCLOSPORINE [Suspect]
     Route: 065
  3. PREDNISOLONE [Suspect]
     Route: 065

REACTIONS (4)
  - ABDOMINAL PAIN [None]
  - BLOOD CREATININE INCREASED [None]
  - DEATH [None]
  - DIARRHOEA [None]
